FAERS Safety Report 13521458 (Version 2)
Quarter: 2017Q3

REPORT INFORMATION
  Report Type: Spontaneous
  Country: GB (occurrence: GB)
  Receive Date: 20170508
  Receipt Date: 20170729
  Transmission Date: 20171127
  Serious: Yes (Disabling, Other)
  Sender: FDA-Public Use
  Company Number: GB-ACCORD-051092

PATIENT
  Age: 62 Year
  Sex: Female

DRUGS (18)
  1. MONOMIL XL [Concomitant]
     Active Substance: ISOSORBIDE MONONITRATE
     Dosage: OD, IN THE MORNING.
  2. DOCUSATE/DOCUSATE CALCIUM/DOCUSATE POTASSIUM/DOCUSATE SODIUM [Concomitant]
     Dosage: 200 MG, BID
  3. ACETYLSALICYLIC ACID [Concomitant]
     Active Substance: ASPIRIN
     Dosage: 75 MG, OD
  4. CLOBETASOL [Concomitant]
     Active Substance: CLOBETASOL
     Dosage: APPLY AS DIRECTED
  5. OMEPRAZOLE. [Concomitant]
     Active Substance: OMEPRAZOLE
     Dosage: 40 MG IN THE MORNING 20 MG AT TEATIME.
  6. PROCHLORPERAZINE. [Concomitant]
     Active Substance: PROCHLORPERAZINE
     Dosage: TID
  7. INFLUENZA VACCINE/INFLUENZA VACCINE INACTIVATED [Concomitant]
     Indication: INFLUENZA IMMUNISATION
  8. GABAPENTIN. [Concomitant]
     Active Substance: GABAPENTIN
     Dosage: 600 MG, TID
  9. QUETIAPINE. [Suspect]
     Active Substance: QUETIAPINE
     Indication: PRODUCT USED FOR UNKNOWN INDICATION
     Dosage: OD, IN MORNING.?ALSO RECEIVED: 50 MG, OD, AT NIGHT
  10. MST CONTINUS [Concomitant]
     Active Substance: MORPHINE SULFATE
     Dosage: 20 MG, BID, IN MORNING AND AT NIGHT
  11. ATORVASTATIN [Concomitant]
     Active Substance: ATORVASTATIN
     Dosage: 20 MG, OD
  12. VENLAFAXINE/VENLAFAXINE HYDROCHLORIDE [Concomitant]
     Dosage: OD
  13. FELODIPINE. [Concomitant]
     Active Substance: FELODIPINE
     Dosage: 10 MG, OD
  14. GLYCERYL TRINITRATE [Concomitant]
     Active Substance: NITROGLYCERIN
     Dosage: SPRAY 1 OR 2 DOSES UNDER TONGUE AS DIRECTED.
     Route: 060
  15. PNEUMOVAX II [Concomitant]
     Active Substance: PNEUMOCOCCAL VACCINE POLYVALENT
     Indication: PNEUMOCOCCAL IMMUNISATION
  16. DERMOL [Concomitant]
     Active Substance: BENZALKONIUM CHLORIDE\CHLORHEXIDINE HYDROCHLORIDE\ISOPROPYL MYRISTATE\PARAFFIN
     Dosage: APPLY TO SKIN OR USE AS SOAP SUBSTITUTE.
  17. PARACETAMOL [Concomitant]
     Active Substance: ACETAMINOPHEN
     Dosage: TO BE TAKEN EVERY 4-6 HOURS UP TO FOUR TIMES A DAY
  18. QUETIAPINE. [Suspect]
     Active Substance: QUETIAPINE
     Dosage: IN MORNING.

REACTIONS (6)
  - Tearfulness [Recovering/Resolving]
  - Hyperhidrosis [Recovering/Resolving]
  - Mental disorder [Unknown]
  - Tremor [Recovering/Resolving]
  - Feeling of body temperature change [Recovering/Resolving]
  - Food interaction [Unknown]

NARRATIVE: CASE EVENT DATE: 20170301
